FAERS Safety Report 8333118-1 (Version None)
Quarter: 2012Q2

REPORT INFORMATION
  Report Type: 
  Country: None (occurrence: None)
  Receive Date: 20120503
  Receipt Date: 20120502
  Transmission Date: 20120825
  Serious: Yes (Life-Threatening, Hospitalization, Disabling, Other)
  Sender: FDA-Public Use
  Company Number: PHFR2012GB001385

PATIENT
  Sex: Male

DRUGS (3)
  1. ATENOLOL [Concomitant]
     Indication: TACHYCARDIA
     Dosage: 50 MG, UNK
     Route: 048
     Dates: start: 20070101
  2. CLOZARIL [Suspect]
     Indication: SCHIZOPHRENIA
     Dosage: 200 MG
     Route: 048
     Dates: start: 20070101
  3. CLONAZEPAM [Concomitant]
     Indication: ANXIETY
     Dosage: 0.75 MG, DAILY
     Route: 048
     Dates: start: 20070101

REACTIONS (6)
  - INFLUENZA LIKE ILLNESS [None]
  - CARDIAC MURMUR [None]
  - CHORDAE TENDINAE RUPTURE [None]
  - MITRAL VALVE INCOMPETENCE [None]
  - CARDIOMYOPATHY [None]
  - ENDOCARDITIS BACTERIAL [None]
